FAERS Safety Report 12335248 (Version 1)
Quarter: 2016Q2

REPORT INFORMATION
  Report Type: Not Available
  Country: DE (occurrence: DE)
  Receive Date: 20160504
  Receipt Date: 20160504
  Transmission Date: 20160815
  Serious: Yes (Other)
  Sender: FDA-Public Use
  Company Number: DE-ANIPHARMA-2016-DE-000003

PATIENT
  Age: 24 Year
  Sex: Female
  Weight: 86.7 kg

DRUGS (4)
  1. FLECAINIDE ACETATE (NON-SPECIFIC) [Suspect]
     Active Substance: FLECAINIDE ACETATE
     Dosage: 200 MG DAILY
  2. UNSPECIFIED VITAMIN [Concomitant]
  3. IBUPROFEN (NON-SPECIFIC) [Suspect]
     Active Substance: IBUPROFEN
     Dosage: 600 MG ONCE
  4. DICLOFENAC [Suspect]
     Active Substance: DICLOFENAC
     Dosage: 100 MG ONCE

REACTIONS (3)
  - Caesarean section [None]
  - Exposure during pregnancy [None]
  - Tubulointerstitial nephritis [Unknown]
